FAERS Safety Report 7457731-9 (Version None)
Quarter: 2011Q2

REPORT INFORMATION
  Report Type: 
  Country: None (occurrence: None)
  Receive Date: 20110502
  Receipt Date: 20110502
  Transmission Date: 20111010
  Serious: No
  Sender: FDA-Public Use
  Company Number: None

PATIENT
  Sex: Female
  Weight: 68.2 kg

DRUGS (1)
  1. MELOXICAM [Suspect]
     Indication: LIGAMENT SPRAIN
     Dosage: 15MG ONE TABLET AFTER MEALS PO
     Route: 048
     Dates: start: 20110107

REACTIONS (10)
  - ABDOMINAL PAIN [None]
  - INAPPROPRIATE SCHEDULE OF DRUG ADMINISTRATION [None]
  - OEDEMA PERIPHERAL [None]
  - DRUG DISPENSING ERROR [None]
  - EYELID OEDEMA [None]
  - GAIT DISTURBANCE [None]
  - BLOOD PRESSURE INCREASED [None]
  - MYALGIA [None]
  - MEDICATION ERROR [None]
  - SWELLING FACE [None]
